FAERS Safety Report 17810939 (Version 1)
Quarter: 2020Q2

REPORT INFORMATION
  Report Type: Spontaneous
  Country: CA (occurrence: CA)
  Receive Date: 20200521
  Receipt Date: 20200521
  Transmission Date: 20200714
  Serious: Yes (Other)
  Sender: FDA-Public Use
  Company Number: CA-009507513-1807CAN001165

PATIENT
  Sex: Male

DRUGS (1)
  1. PROPECIA [Suspect]
     Active Substance: FINASTERIDE
     Dosage: UNK
     Route: 048
     Dates: start: 1994, end: 2012

REACTIONS (10)
  - Visual impairment [Unknown]
  - Sexual dysfunction [Unknown]
  - Depression [Unknown]
  - Anxiety [Not Recovered/Not Resolved]
  - Cognitive disorder [Unknown]
  - Amnesia [Unknown]
  - Gynaecomastia [Unknown]
  - Suicidal ideation [Unknown]
  - Dry skin [Unknown]
  - Gastrooesophageal reflux disease [Unknown]
